FAERS Safety Report 20779796 (Version 1)
Quarter: 2022Q2

REPORT INFORMATION
  Report Type: Spontaneous
  Country: US (occurrence: US)
  Receive Date: 20220503
  Receipt Date: 20220503
  Transmission Date: 20220721
  Serious: No
  Sender: FDA-Public Use
  Company Number: US-PFIZER INC-202200434503

PATIENT
  Age: 30 Year
  Sex: Female

DRUGS (1)
  1. ELELYSO [Suspect]
     Active Substance: TALIGLUCERASE ALFA
     Dosage: UNK

REACTIONS (9)
  - COVID-19 [Recovering/Resolving]
  - Dyspnoea [Unknown]
  - Myalgia [Unknown]
  - Arthralgia [Unknown]
  - Bone pain [Recovered/Resolved]
  - Fatigue [Unknown]
  - Back pain [Unknown]
  - Off label use [Unknown]
  - Product use issue [Unknown]

NARRATIVE: CASE EVENT DATE: 20210406
